FAERS Safety Report 13262779 (Version 2)
Quarter: 2017Q2

REPORT INFORMATION
  Report Type: Report from Study
  Country: BE (occurrence: BE)
  Receive Date: 20170223
  Receipt Date: 20170412
  Transmission Date: 20170830
  Serious: Yes (Hospitalization)
  Sender: FDA-Public Use
  Company Number: BE-ROCHE-1843402

PATIENT
  Age: 54 Year
  Sex: Female
  Weight: 59.3 kg

DRUGS (6)
  1. PERIO-AID MOUTHWASH (UNK INGREDIENTS) [Concomitant]
  2. ACICLOVIR MYLAN [Concomitant]
     Active Substance: ACYCLOVIR
  3. AMOXICILLINE SANDOZ [Concomitant]
     Active Substance: AMOXICILLIN
  4. OBINUTUZUMAB [Suspect]
     Active Substance: OBINUTUZUMAB
     Indication: FOLLICLE CENTRE LYMPHOMA, FOLLICULAR GRADE I, II, III
     Dosage: LAST DOSE PRIOR TO SAE: 29/AUG/2016
     Route: 042
     Dates: start: 20160215
  5. DUVELISIB [Suspect]
     Active Substance: DUVELISIB
     Indication: FOLLICLE CENTRE LYMPHOMA, FOLLICULAR GRADE I, II, III
     Dosage: LAST DOSE PRIOR TO SAE: 13/OCT/2016
     Route: 065
     Dates: start: 20160215
  6. DAKTARIN [Concomitant]
     Active Substance: MICONAZOLE NITRATE
     Route: 048

REACTIONS (1)
  - Stomatitis [Recovered/Resolved]

NARRATIVE: CASE EVENT DATE: 20161016
